FAERS Safety Report 6807392-4 (Version None)
Quarter: 2010Q2

REPORT INFORMATION
  Report Type: 
  Country: None (occurrence: None)
  Receive Date: 20100629
  Receipt Date: 20100309
  Transmission Date: 20101027
  Serious: No
  Sender: FDA-Public Use
  Company Number: US-PFIZER INC-2008070694

PATIENT
  Sex: Male
  Weight: 79.5 kg

DRUGS (5)
  1. TIKOSYN [Suspect]
     Route: 048
  2. LEXAPRO [Concomitant]
  3. ZOCOR [Concomitant]
  4. ACETYLSALICYLIC ACID [Concomitant]
  5. ARICEPT [Concomitant]

REACTIONS (2)
  - FATIGUE [None]
  - WEIGHT DECREASED [None]
